FAERS Safety Report 8144309-7 (Version None)
Quarter: 2012Q1

REPORT INFORMATION
  Report Type: 
  Country: None (occurrence: None)
  Receive Date: 20120217
  Receipt Date: 20120208
  Transmission Date: 20120608
  Serious: Yes (Other)
  Sender: FDA-Public Use
  Company Number: US-SANOFI-AVENTIS-2011SA085175

PATIENT
  Age: 68 Year
  Sex: Male
  Weight: 111 kg

DRUGS (1)
  1. MULTAQ [Suspect]
     Indication: ATRIAL FIBRILLATION
     Route: 048
     Dates: start: 20110908, end: 20110910

REACTIONS (3)
  - ATRIAL FIBRILLATION [None]
  - HEART RATE IRREGULAR [None]
  - DISCOMFORT [None]
